FAERS Safety Report 4753883-X (Version None)
Quarter: 2005Q3

REPORT INFORMATION
  Report Type: 
  Country: None (occurrence: None)
  Receive Date: 20050825
  Receipt Date: 20050811
  Transmission Date: 20060218
  Serious: Yes (Hospitalization)
  Sender: FDA-Public Use
  Company Number: 2005BI012856

PATIENT
  Age: 43 Year
  Sex: Female

DRUGS (10)
  1. AVONEX [Suspect]
     Indication: MULTIPLE SCLEROSIS
     Dosage: 30 UG;QW; IM
     Route: 030
     Dates: start: 20020322
  2. AVONEX [Suspect]
     Indication: MULTIPLE SCLEROSIS
     Dosage: 30 UG ;QW; IM
     Route: 030
  3. ZOFRAN [Concomitant]
  4. TRAZADONE [Concomitant]
  5. ZOLOFT [Concomitant]
  6. MIDRIN [Concomitant]
  7. PERCODAN [Concomitant]
  8. ARICEPT [Concomitant]
  9. MIGRAZONE [Concomitant]
  10. KLONOPIN [Concomitant]

REACTIONS (4)
  - BURNS SECOND DEGREE [None]
  - MULTIPLE SCLEROSIS [None]
  - PARALYSIS [None]
  - SEDATION [None]
